FAERS Safety Report 21186393 (Version 2)
Quarter: 2022Q3

REPORT INFORMATION
  Report Type: Report from Study
  Country: CN (occurrence: CN)
  Receive Date: 20220808
  Receipt Date: 20220823
  Transmission Date: 20221027
  Serious: Yes (Hospitalization)
  Sender: FDA-Public Use
  Company Number: CN-BAXTER-2022BAX016737

PATIENT
  Age: 64 Year
  Sex: Male
  Weight: 66.4 kg

DRUGS (42)
  1. CYCLOPHOSPHAMIDE [Suspect]
     Active Substance: CYCLOPHOSPHAMIDE
     Indication: Mantle cell lymphoma
     Dosage: 1425 MG, ADMINISTERED ON DAY 1 [?3 DAYS], WITH 21 DAYS BEING A TREATMENT CYCLE),,D1, 1ST CHEMOTHERAP
     Route: 041
     Dates: start: 20220302
  2. CYCLOPHOSPHAMIDE [Suspect]
     Active Substance: CYCLOPHOSPHAMIDE
     Dosage: 1425 MG, Q3W, 2ND CHEMOTHERAPY, (DOSAGE FORM: INJECTION)
     Route: 041
     Dates: start: 20220322
  3. CYCLOPHOSPHAMIDE [Suspect]
     Active Substance: CYCLOPHOSPHAMIDE
     Dosage: 1425 MG, Q3W, 3RD CHEMOTHERAPY, (DOSAGE FORM: INJECTION)
     Route: 041
     Dates: start: 20220412
  4. CYCLOPHOSPHAMIDE [Suspect]
     Active Substance: CYCLOPHOSPHAMIDE
     Dosage: 1425 MG, Q3W, 4TH CHEMOTHERAPY, (DOSAGE FORM: INJECTION)
     Route: 041
     Dates: start: 20220505
  5. CYCLOPHOSPHAMIDE [Suspect]
     Active Substance: CYCLOPHOSPHAMIDE
     Dosage: 1425 MG, Q3W, 5TH CHEMOTHERAPY, (DOSAGE FORM: INJECTION)
     Route: 041
     Dates: start: 20220525
  6. CYCLOPHOSPHAMIDE [Suspect]
     Active Substance: CYCLOPHOSPHAMIDE
     Dosage: 1425 MG, Q3W,D1, 6TH CHEMOTHERAPY, (DOSAGE FORM: INJECTION)
     Route: 041
     Dates: start: 20220615, end: 20220615
  7. CYCLOPHOSPHAMIDE [Suspect]
     Active Substance: CYCLOPHOSPHAMIDE
     Dosage: BEFORE SAE
     Route: 041
     Dates: start: 20220703
  8. DOXORUBICIN HYDROCHLORIDE [Suspect]
     Active Substance: DOXORUBICIN HYDROCHLORIDE
     Indication: Mantle cell lymphoma
     Dosage: 95 MG, ADMINISTERED ON DAY 1 [?3 DAYS], WITH 21 DAYS BEING A TREATMENT CYCLE),, 1ST CHEMOTHERAPY
     Route: 041
     Dates: start: 20220302
  9. DOXORUBICIN HYDROCHLORIDE [Suspect]
     Active Substance: DOXORUBICIN HYDROCHLORIDE
     Dosage: 95 MG, Q3W, 2ND CHEMOTHERAPY
     Route: 041
     Dates: start: 20220322
  10. DOXORUBICIN HYDROCHLORIDE [Suspect]
     Active Substance: DOXORUBICIN HYDROCHLORIDE
     Dosage: 95 MG, Q3W, 3RD CHEMOTHERAPY
     Route: 041
     Dates: start: 20220412
  11. DOXORUBICIN HYDROCHLORIDE [Suspect]
     Active Substance: DOXORUBICIN HYDROCHLORIDE
     Dosage: 95 MG, Q3W, 4TH CHEMOTHERAPY
     Route: 041
     Dates: start: 20220505
  12. DOXORUBICIN HYDROCHLORIDE [Suspect]
     Active Substance: DOXORUBICIN HYDROCHLORIDE
     Dosage: 95 MG, Q3W, 5TH CHEMOTHERAPY
     Route: 041
     Dates: start: 20220525
  13. DOXORUBICIN HYDROCHLORIDE [Suspect]
     Active Substance: DOXORUBICIN HYDROCHLORIDE
     Dosage: 95 MG, Q3W, D1, 6TH CHEMOTHERAPY
     Route: 041
     Dates: start: 20220615, end: 20220615
  14. DOXORUBICIN HYDROCHLORIDE [Suspect]
     Active Substance: DOXORUBICIN HYDROCHLORIDE
     Dosage: BEFORE SAE
     Route: 041
     Dates: start: 20220703
  15. RITUXIMAB [Suspect]
     Active Substance: RITUXIMAB
     Indication: Mantle cell lymphoma
     Dosage: 712 MG,ADMINISTERED ON DAY 1 [?3 DAYS], WITH 21 DAYS BEING A TREATMENT CYCLE, 1ST CHEMOTHERAPY
     Route: 041
     Dates: start: 20220301
  16. RITUXIMAB [Suspect]
     Active Substance: RITUXIMAB
     Dosage: 712 MG, Q3W, 2ND CHEMOTHERAPY
     Route: 041
     Dates: start: 20220322
  17. RITUXIMAB [Suspect]
     Active Substance: RITUXIMAB
     Dosage: 712 MG, Q3W, 3RD CHEMOTHERAPY
     Route: 041
     Dates: start: 20220412
  18. RITUXIMAB [Suspect]
     Active Substance: RITUXIMAB
     Dosage: 712 MG, Q3W, 4TH CHEMOTHERAPY
     Route: 041
     Dates: start: 20220505
  19. RITUXIMAB [Suspect]
     Active Substance: RITUXIMAB
     Dosage: 712 MG, Q3W, 5TH CHEMOTHERAPY
     Route: 041
     Dates: start: 20220525
  20. RITUXIMAB [Suspect]
     Active Substance: RITUXIMAB
     Dosage: 712 MG, Q3W, D1, (100 MG/10 ML/BOTTLE), (HLX01), 6TH CHEMOTHERAPY
     Route: 041
     Dates: start: 20220615, end: 20220615
  21. RITUXIMAB [Suspect]
     Active Substance: RITUXIMAB
     Dosage: BEFORE SAE
     Route: 041
     Dates: start: 20220703
  22. VINCRISTINE SULFATE [Suspect]
     Active Substance: VINCRISTINE SULFATE
     Indication: Mantle cell lymphoma
     Dosage: 2 MG, ADMINISTERED ON DAY 1 [?3 DAYS], WITH 21 DAYS BEING A TREATMENT CYCLE),, 1ST CHEMOTHERAPY
     Route: 041
     Dates: start: 20220302
  23. VINCRISTINE SULFATE [Suspect]
     Active Substance: VINCRISTINE SULFATE
     Dosage: 2 MG, Q3W, 2ND CHEMOTHERAPY
     Route: 041
     Dates: start: 20220322
  24. VINCRISTINE SULFATE [Suspect]
     Active Substance: VINCRISTINE SULFATE
     Dosage: 2 MG, Q3W, 3RD CHEMOTHERAPY
     Route: 041
     Dates: start: 20220412
  25. VINCRISTINE SULFATE [Suspect]
     Active Substance: VINCRISTINE SULFATE
     Dosage: 2 MG, Q3W, 4TH CHEMOTHERAPY
     Route: 041
     Dates: start: 20220505
  26. VINCRISTINE SULFATE [Suspect]
     Active Substance: VINCRISTINE SULFATE
     Dosage: 2 MG, Q3W, 5TH CHEMOTHERAPY
     Route: 041
     Dates: start: 20220525
  27. VINCRISTINE SULFATE [Suspect]
     Active Substance: VINCRISTINE SULFATE
     Dosage: 2 MG, Q3W,D1, 6TH CHEMOTHERAPY
     Route: 041
     Dates: start: 20220615, end: 20220615
  28. VINCRISTINE SULFATE [Suspect]
     Active Substance: VINCRISTINE SULFATE
     Dosage: BEFORE SAE
     Route: 041
     Dates: start: 20220703
  29. PREDNISONE ACETATE [Suspect]
     Active Substance: PREDNISONE ACETATE
     Indication: Mantle cell lymphoma
     Dosage: 100 MG,1ST CHEMOTHERAPY. ON DAYS 1-5 [?3 DAYS], WITH 21 DAYS BEING A TREATMENT CYCLE
     Route: 048
     Dates: start: 20220302
  30. PREDNISONE ACETATE [Suspect]
     Active Substance: PREDNISONE ACETATE
     Dosage: 100 MG, 2ND CHEMOTHERAPY
     Route: 048
     Dates: start: 20220322
  31. PREDNISONE ACETATE [Suspect]
     Active Substance: PREDNISONE ACETATE
     Dosage: 100 MG, 3RD CHEMOTHERAPY
     Route: 048
     Dates: start: 20220412
  32. PREDNISONE ACETATE [Suspect]
     Active Substance: PREDNISONE ACETATE
     Dosage: 100 MG, 4TH CHEMOTHERAPY
     Route: 048
     Dates: start: 20220505
  33. PREDNISONE ACETATE [Suspect]
     Active Substance: PREDNISONE ACETATE
     Dosage: 100 MG, 5TH CHEMOTHERAPY
     Route: 048
     Dates: start: 20220525
  34. PREDNISONE ACETATE [Suspect]
     Active Substance: PREDNISONE ACETATE
     Dosage: 100 MG (INTERMITTENT),D1-5, 6TH CHEMOTHERAPY
     Route: 048
     Dates: start: 20220615, end: 20220619
  35. PREDNISONE ACETATE [Suspect]
     Active Substance: PREDNISONE ACETATE
     Dosage: BEFORE SAE
     Route: 048
     Dates: start: 20220703
  36. DEXAMETHASONE SODIUM PHOSPHATE [Concomitant]
     Active Substance: DEXAMETHASONE SODIUM PHOSPHATE
     Indication: Allergy prophylaxis
     Dosage: 5 MG, QD,
     Route: 041
     Dates: start: 20220615, end: 20220615
  37. PROMETHAZINE HYDROCHLORIDE [Concomitant]
     Active Substance: PROMETHAZINE HYDROCHLORIDE
     Indication: Allergy prophylaxis
     Dosage: 12.5 MG, QD
     Route: 030
     Dates: start: 20220615, end: 20220615
  38. OMEPRAZOLE SODIUM [Concomitant]
     Active Substance: OMEPRAZOLE SODIUM
     Indication: Gastrointestinal disorder prophylaxis
     Dosage: 40 MG, QD
     Route: 041
     Dates: start: 20220615, end: 20220615
  39. TROPISETRON HYDROCHLORIDE [Concomitant]
     Active Substance: TROPISETRON HYDROCHLORIDE
     Indication: Gastrointestinal disorder prophylaxis
     Dosage: 5 MG, QD
     Route: 041
     Dates: start: 20220615, end: 20220615
  40. GLUTATHIONE [Concomitant]
     Active Substance: GLUTATHIONE
     Indication: Hepatobiliary disorder prophylaxis
     Dosage: 1.2 G, QD
     Route: 041
     Dates: start: 20220615, end: 20220615
  41. PEGYLATED RECOMBINANT HUMAN GRANULOCYTE COLONY-STIMULATING FACTOR [Concomitant]
     Indication: Prophylaxis
     Dosage: 12 MG, QD
     Route: 058
     Dates: start: 20220617, end: 20220617
  42. ESOMEPRAZOLE MAGNESIUM [Concomitant]
     Active Substance: ESOMEPRAZOLE MAGNESIUM
     Indication: Gastrointestinal disorder prophylaxis
     Dosage: 20 MG, QD, ENTERIC-COATED TABLETS
     Route: 048
     Dates: start: 20220419

REACTIONS (1)
  - Pneumonitis [Recovering/Resolving]

NARRATIVE: CASE EVENT DATE: 20220704
